FAERS Safety Report 4829281-7 (Version None)
Quarter: 2005Q4

REPORT INFORMATION
  Report Type: 
  Country: None (occurrence: None)
  Receive Date: 20051116
  Receipt Date: 20050921
  Transmission Date: 20060501
  Serious: Yes (Hospitalization)
  Sender: FDA-Public Use
  Company Number: JP-JPN-A20052245

PATIENT
  Age: 72 Year
  Sex: Male

DRUGS (8)
  1. PAXIL [Suspect]
     Indication: DEPRESSION
     Route: 048
     Dates: start: 20050106, end: 20050828
  2. PARIET [Concomitant]
     Indication: GASTRIC ULCER
     Dosage: 40MG PER DAY
     Route: 048
     Dates: start: 20050602
  3. GASTROM [Concomitant]
     Indication: GASTRIC ULCER
     Dosage: 6G PER DAY
     Route: 048
     Dates: start: 20050602
  4. ENSURE [Concomitant]
     Indication: ANOREXIA
     Dosage: 250ML PER DAY
     Route: 048
     Dates: start: 20050616, end: 20050622
  5. NINJIN-YOEI-TO [Concomitant]
     Indication: MALNUTRITION
     Dosage: 27G PER DAY
     Route: 048
     Dates: start: 20050616, end: 20050704
  6. HOCHU-EKKI-TO [Concomitant]
     Dosage: 10G PER DAY
     Route: 048
     Dates: start: 20050725, end: 20050928
  7. AVISHOT [Concomitant]
     Indication: BENIGN PROSTATIC HYPERPLASIA
     Dosage: 50MG PER DAY
     Route: 048
     Dates: start: 20050706
  8. BUP-4 [Concomitant]
     Indication: BENIGN PROSTATIC HYPERPLASIA
     Dosage: 10MG PER DAY
     Route: 048
     Dates: start: 20050706, end: 20050824

REACTIONS (8)
  - ABNORMAL BEHAVIOUR [None]
  - CONTUSION [None]
  - FALL [None]
  - HYPOKINESIA [None]
  - IMMOBILE [None]
  - INAPPROPRIATE ANTIDIURETIC HORMONE SECRETION [None]
  - INCOHERENT [None]
  - INCONTINENCE [None]
